FAERS Safety Report 9809277 (Version 1)
Quarter: 2014Q1

REPORT INFORMATION
  Report Type: Spontaneous
  Country: US (occurrence: US)
  Receive Date: 20140110
  Receipt Date: 20140110
  Transmission Date: 20141002
  Serious: Yes (Death)
  Sender: FDA-Public Use
  Company Number: CHPA2014US000586

PATIENT
  Sex: Female

DRUGS (1)
  1. VOLTAREN GEL [Suspect]
     Route: 061

REACTIONS (1)
  - Death [Fatal]
